FAERS Safety Report 23319624 (Version 1)
Quarter: 2023Q4

REPORT INFORMATION
  Report Type: Spontaneous
  Country: US (occurrence: None)
  Receive Date: 20231220
  Receipt Date: 20231220
  Transmission Date: 20240110
  Serious: Yes (Death)
  Sender: FDA-Public Use
  Company Number: US-ROCHE-3259463

PATIENT
  Age: 87 Year
  Sex: Male

DRUGS (3)
  1. ACTIVASE [Suspect]
     Active Substance: ALTEPLASE
     Indication: Cerebrovascular accident
     Route: 065
  2. ACTIVASE [Suspect]
     Active Substance: ALTEPLASE
  3. LECANEMAB [Concomitant]
     Active Substance: LECANEMAB

REACTIONS (1)
  - Haemorrhage intracranial [Fatal]
